FAERS Safety Report 19613511 (Version 1)
Quarter: 2021Q3

REPORT INFORMATION
  Report Type: Spontaneous
  Country: US (occurrence: US)
  Receive Date: 20210727
  Receipt Date: 20210727
  Transmission Date: 20211014
  Serious: Yes (Hospitalization, Other)
  Sender: FDA-Public Use
  Company Number: US-GLAXOSMITHKLINE-US2021AMR156868

PATIENT
  Sex: Female

DRUGS (9)
  1. ZOLOFT [Suspect]
     Active Substance: SERTRALINE HYDROCHLORIDE
     Dosage: 25 MG, TABLET
  2. ZOLOFT [Suspect]
     Active Substance: SERTRALINE HYDROCHLORIDE
     Indication: DEPRESSION
     Dosage: 50 MG, TABLET
  3. LORAZEPAM. [Suspect]
     Active Substance: LORAZEPAM
     Indication: ANXIETY
     Dosage: 0.5 MG, BID
  4. LORAZEPAM. [Suspect]
     Active Substance: LORAZEPAM
     Indication: DEPRESSION
  5. ZOLOFT [Suspect]
     Active Substance: SERTRALINE HYDROCHLORIDE
     Indication: ANXIETY
     Dosage: 75 MG, QD
  6. WELLBUTRIN [Suspect]
     Active Substance: BUPROPION HYDROCHLORIDE
     Indication: ANXIETY
     Dosage: 300 MG, QD
  7. NEURONTIN [Suspect]
     Active Substance: GABAPENTIN
     Indication: ANXIETY
     Dosage: 300 MG, BID
     Dates: start: 2020
  8. WELLBUTRIN [Suspect]
     Active Substance: BUPROPION HYDROCHLORIDE
     Indication: DEPRESSION
  9. LIPITOR [Suspect]
     Active Substance: ATORVASTATIN CALCIUM
     Indication: CARDIAC DISORDER
     Dosage: UNK

REACTIONS (14)
  - Anxiety [Not Recovered/Not Resolved]
  - Cardiac disorder [Unknown]
  - Opisthotonus [Not Recovered/Not Resolved]
  - Negative thoughts [Not Recovered/Not Resolved]
  - Emotional disorder [Not Recovered/Not Resolved]
  - Dizziness [Not Recovered/Not Resolved]
  - Confusional state [Not Recovered/Not Resolved]
  - Emotional poverty [Not Recovered/Not Resolved]
  - Drug ineffective [Unknown]
  - Product use in unapproved indication [Unknown]
  - Blood sodium decreased [Recovered/Resolved]
  - Psychiatric symptom [Unknown]
  - Fall [Not Recovered/Not Resolved]
  - Feeling abnormal [Not Recovered/Not Resolved]
